FAERS Safety Report 21150951 (Version 2)
Quarter: 2022Q4

REPORT INFORMATION
  Report Type: Report from Study
  Country: US (occurrence: US)
  Receive Date: 20220729
  Receipt Date: 20221214
  Transmission Date: 20230113
  Serious: Yes (Hospitalization)
  Sender: FDA-Public Use
  Company Number: US-ABBVIE-22K-163-4471376-00

PATIENT
  Age: 34 Year
  Sex: Female

DRUGS (3)
  1. HUMIRA [Suspect]
     Active Substance: ADALIMUMAB
     Indication: Crohn^s disease
     Route: 058
     Dates: start: 20210819
  2. HUMIRA [Suspect]
     Active Substance: ADALIMUMAB
     Route: 058
  3. ELECTROLYTES NOS [Concomitant]
     Active Substance: ELECTROLYTES NOS
     Indication: Product used for unknown indication

REACTIONS (16)
  - Crohn^s disease [Unknown]
  - Hospitalisation [Unknown]
  - Hypotension [Recovered/Resolved]
  - Antibody test negative [Unknown]
  - Heart rate increased [Recovered/Resolved]
  - Malaise [Recovered/Resolved]
  - Dehydration [Unknown]
  - Anxiety [Unknown]
  - Depressed mood [Unknown]
  - Loss of personal independence in daily activities [Unknown]
  - Frequent bowel movements [Recovered/Resolved]
  - Insomnia [Unknown]
  - Gastrointestinal sounds abnormal [Unknown]
  - Fatigue [Recovering/Resolving]
  - Drug ineffective [Not Recovered/Not Resolved]
  - Abdominal distension [Unknown]

NARRATIVE: CASE EVENT DATE: 20220601
